FAERS Safety Report 6313676-9 (Version None)
Quarter: 2009Q3

REPORT INFORMATION
  Report Type: 
  Country: None (occurrence: None)
  Receive Date: 20090814
  Receipt Date: 20090730
  Transmission Date: 20100115
  Serious: Yes (Hospitalization)
  Sender: FDA-Public Use
  Company Number: 1-19349022

PATIENT
  Sex: Male

DRUGS (6)
  1. PHENYTOIN [Suspect]
     Indication: CONVULSION
     Dosage: 3 TIMES DAILY, ORAL
     Route: 048
  2. PHENYTOIN [Suspect]
     Indication: PARTIAL SEIZURES
     Dosage: 3 TIMES DAILY, ORAL
     Route: 048
  3. PHENYTOIN [Suspect]
     Indication: CONVULSION
     Dosage: INTRAVENOUS
     Route: 042
  4. PHENYTOIN [Suspect]
     Indication: PARTIAL SEIZURES
     Dosage: INTRAVENOUS
     Route: 042
  5. VALPROATE SODIUM [Concomitant]
  6. CLORAZEPATE DIPOTASSIUM [Concomitant]

REACTIONS (6)
  - AGRANULOCYTOSIS [None]
  - ALANINE AMINOTRANSFERASE INCREASED [None]
  - ASPARTATE AMINOTRANSFERASE INCREASED [None]
  - DRUG RASH WITH EOSINOPHILIA AND SYSTEMIC SYMPTOMS [None]
  - FEBRILE NEUTROPENIA [None]
  - SEPSIS [None]
